FAERS Safety Report 9133136 (Version 1)
Quarter: 2013Q1

REPORT INFORMATION
  Report Type: Spontaneous
  Country: GB (occurrence: GB)
  Receive Date: 20130301
  Receipt Date: 20130301
  Transmission Date: 20140127
  Serious: Yes (Other)
  Sender: FDA-Public Use
  Company Number: GB-ASTRAZENECA-2013SE11834

PATIENT
  Sex: Female

DRUGS (1)
  1. ZOLADEX [Suspect]
     Route: 058

REACTIONS (2)
  - Exposure during pregnancy [Unknown]
  - Foetal death [Unknown]
